FAERS Safety Report 10034655 (Version 1)
Quarter: 2014Q1

REPORT INFORMATION
  Report Type: Spontaneous
  Country: CN (occurrence: None)
  Receive Date: 20140324
  Receipt Date: 20140324
  Transmission Date: 20141002
  Serious: Yes (Other)
  Sender: FDA-Public Use
  Company Number: CO-OR-CN-2014-027

PATIENT
  Sex: 0

DRUGS (4)
  1. PREDNISOLONE (PREDNISOLONE) [Suspect]
     Indication: CONGENITAL ABSENCE OF BILE DUCTS
     Dosage: TAPER OF 4MG/KG, 3MG/KG, 2MG/KG EVERY THREE DAYS, INTRAVENOUS??ONE WEEK AFTER SURGERY
     Route: 042
  2. CEFOPERAZONE [Concomitant]
  3. METRONIDAZOLE [Concomitant]
  4. URSODEOXYCHOLIC ACID [Concomitant]

REACTIONS (1)
  - Gastrointestinal haemorrhage [None]
